FAERS Safety Report 5949767-1 (Version None)
Quarter: 2008Q4

REPORT INFORMATION
  Report Type: 
  Country: None (occurrence: None)
  Receive Date: 20081022
  Receipt Date: 20080226
  Transmission Date: 20090506
  Serious: Yes (Other)
  Sender: FDA-Public Use
  Company Number: SPV1-2008-00411

PATIENT
  Sex: Male

DRUGS (1)
  1. VYVANSE [Suspect]
     Dosage: 1X/DAY:QD, ORAL
     Route: 048
     Dates: end: 20080101

REACTIONS (1)
  - SUICIDAL IDEATION [None]
